FAERS Safety Report 6816698-4 (Version None)
Quarter: 2010Q3

REPORT INFORMATION
  Report Type: 
  Country: None (occurrence: None)
  Receive Date: 20100706
  Receipt Date: 20100628
  Transmission Date: 20110219
  Serious: Yes (Other)
  Sender: FDA-Public Use
  Company Number: US-JNJFOC-20100700075

PATIENT
  Sex: Male
  Weight: 43.09 kg

DRUGS (5)
  1. FENTANYL [Suspect]
     Indication: RAYNAUD'S PHENOMENON
     Route: 062
  2. FENTANYL [Suspect]
     Indication: MIXED CONNECTIVE TISSUE DISEASE
     Route: 062
  3. FENTANYL [Suspect]
     Route: 062
  4. FENTANYL [Suspect]
     Route: 062
  5. NEXIUM [Concomitant]
     Indication: GASTROOESOPHAGEAL REFLUX DISEASE
     Route: 048

REACTIONS (5)
  - DRUG DOSE OMISSION [None]
  - FALL [None]
  - FLANK PAIN [None]
  - HAND FRACTURE [None]
  - NEPHROLITHIASIS [None]
